FAERS Safety Report 22107266 (Version 2)
Quarter: 2024Q2

REPORT INFORMATION
  Report Type: Spontaneous
  Country: US (occurrence: US)
  Receive Date: 20230317
  Receipt Date: 20240408
  Transmission Date: 20240716
  Serious: No
  Sender: FDA-Public Use
  Company Number: US-UCBSA-2022064311

PATIENT

DRUGS (2)
  1. BRIVIACT [Suspect]
     Active Substance: BRIVARACETAM
     Indication: Product used for unknown indication
     Dosage: 50MG
  2. BRIVIACT [Suspect]
     Active Substance: BRIVARACETAM
     Dosage: CUTTING MY 100 MG PILLS IN HALF

REACTIONS (1)
  - Wrong technique in product usage process [Unknown]
